FAERS Safety Report 23653027 (Version 1)
Quarter: 2024Q1

REPORT INFORMATION
  Report Type: Spontaneous
  Country: US (occurrence: None)
  Receive Date: 20240319
  Receipt Date: 20240319
  Transmission Date: 20240410
  Serious: Yes (Hospitalization)
  Sender: FDA-Public Use
  Company Number: None

PATIENT
  Age: 71 Year
  Sex: Female
  Weight: 57.6 kg

DRUGS (1)
  1. AMLODIPINE BESYLATE [Suspect]
     Active Substance: AMLODIPINE BESYLATE
     Indication: Hypertension
     Dosage: OTHER QUANTITY : 1 TABLET(S);?FREQUENCY : DAILY;?
     Route: 048

REACTIONS (11)
  - Dizziness [None]
  - Loss of consciousness [None]
  - Memory impairment [None]
  - Head injury [None]
  - Eye movement disorder [None]
  - Somnolence [None]
  - Gait disturbance [None]
  - Vomiting [None]
  - Limb injury [None]
  - Concussion [None]
  - Syncope [None]

NARRATIVE: CASE EVENT DATE: 20240317
